FAERS Safety Report 6447836-3 (Version None)
Quarter: 2009Q4

REPORT INFORMATION
  Report Type: 
  Country: None (occurrence: None)
  Receive Date: 20091120
  Receipt Date: 20091109
  Transmission Date: 20100525
  Serious: Yes (Hospitalization)
  Sender: FDA-Public Use
  Company Number: JP-JNJFOC-20090803924

PATIENT
  Age: 27 Year
  Sex: Male
  Weight: 62 kg

DRUGS (11)
  1. REMICADE [Suspect]
     Route: 042
  2. REMICADE [Suspect]
     Route: 042
  3. REMICADE [Suspect]
     Route: 042
  4. REMICADE [Suspect]
     Route: 042
  5. REMICADE [Suspect]
     Route: 042
  6. REMICADE [Suspect]
     Route: 042
  7. REMICADE [Suspect]
     Indication: CROHN'S DISEASE
     Route: 042
  8. PENTASA [Concomitant]
     Indication: CROHN'S DISEASE
     Route: 048
  9. EBASTEL [Concomitant]
     Indication: PROPHYLAXIS
     Dosage: RECEIVED AS PREMEDICATION WITH SUBSEQUENT INFUSIONS
     Route: 048
  10. POLARAMINE [Concomitant]
     Indication: PROPHYLAXIS
     Dosage: RECEIVED AS PREMEDICATION WITH SUBSEQUENT INFUSIONS
     Route: 048
  11. SOLU-CORTEF [Concomitant]
     Indication: PROPHYLAXIS
     Dosage: RECEIVED AS PREMEDICATION WITH SUBSEQUENT INFUSIONS
     Route: 042

REACTIONS (7)
  - CHILLS [None]
  - ECZEMA [None]
  - ERYTHEMA [None]
  - FLUSHING [None]
  - INFUSION RELATED REACTION [None]
  - NAUSEA [None]
  - VOMITING [None]
